FAERS Safety Report 10075328 (Version 1)
Quarter: 2014Q2

REPORT INFORMATION
  Report Type: Spontaneous
  Country: US (occurrence: US)
  Receive Date: 20140414
  Receipt Date: 20140414
  Transmission Date: 20141212
  Serious: No
  Sender: FDA-Public Use
  Company Number: US-BIOGENIDEC-2014BI030971

PATIENT
  Age: 59 Year
  Sex: Male
  Weight: 100 kg

DRUGS (10)
  1. TECFIDERA [Suspect]
     Indication: PRODUCT USED FOR UNKNOWN INDICATION
     Route: 048
     Dates: end: 20140328
  2. LASIX [Concomitant]
  3. ATIVAN [Concomitant]
  4. COREG [Concomitant]
  5. PLAVIX [Concomitant]
  6. K-DUR [Concomitant]
  7. LISINOPRIL [Concomitant]
  8. IMDUR [Concomitant]
  9. SPIRONOLACTONE [Concomitant]
  10. INDOCIN [Concomitant]

REACTIONS (3)
  - Musculoskeletal pain [Unknown]
  - Pain in extremity [Unknown]
  - Back pain [Unknown]
